FAERS Safety Report 20933680 (Version 5)
Quarter: 2022Q3

REPORT INFORMATION
  Report Type: Spontaneous
  Country: US (occurrence: US)
  Receive Date: 20220608
  Receipt Date: 20220707
  Transmission Date: 20221026
  Serious: Yes (Other)
  Sender: FDA-Public Use
  Company Number: US-PFIZER INC-202200810203

PATIENT
  Age: 59 Year
  Sex: Female

DRUGS (2)
  1. IBRANCE [Suspect]
     Active Substance: PALBOCICLIB
     Indication: Breast cancer metastatic
     Dosage: UNK
     Dates: start: 202205
  2. IBRANCE [Suspect]
     Active Substance: PALBOCICLIB
     Indication: HER2 positive breast cancer

REACTIONS (6)
  - Thrombosis [Unknown]
  - Neuropathy peripheral [Unknown]
  - Bone pain [Unknown]
  - Decreased appetite [Unknown]
  - White blood cell count decreased [Unknown]
  - Fatigue [Unknown]

NARRATIVE: CASE EVENT DATE: 20220101
